FAERS Safety Report 14550947 (Version 1)
Quarter: 2018Q1

REPORT INFORMATION
  Report Type: Spontaneous
  Country: US (occurrence: US)
  Receive Date: 20180220
  Receipt Date: 20180220
  Transmission Date: 20180509
  Serious: No
  Sender: FDA-Public Use
  Company Number: US-TEVA-800405ACC

PATIENT
  Sex: Female

DRUGS (4)
  1. AMPHETAMINE W/DEXTROAMPHETAMINE [Suspect]
     Active Substance: AMPHETAMINE SULFATE\DEXTROAMPHETAMINE
     Indication: FIBROMYALGIA
  2. AMPHETAMINE W/DEXTROAMPHETAMINE [Suspect]
     Active Substance: AMPHETAMINE SULFATE\DEXTROAMPHETAMINE
     Indication: ATTENTION DEFICIT/HYPERACTIVITY DISORDER
     Dosage: BEEN TAKING GENERIC 5MG ADDERALL FOR YEARS
     Route: 065
     Dates: start: 20170725, end: 20170821
  3. CLONOPIN [Concomitant]
     Active Substance: CLONAZEPAM
     Dosage: 15 MILLIGRAM DAILY;
  4. CYMBALTA [Concomitant]
     Active Substance: DULOXETINE HYDROCHLORIDE
     Dosage: 60 MILLIGRAM DAILY;

REACTIONS (8)
  - Feeling abnormal [Recovered/Resolved]
  - Manufacturing materials issue [Unknown]
  - Weight increased [Recovered/Resolved]
  - Product use in unapproved indication [Unknown]
  - Product quality issue [Unknown]
  - Drug ineffective [Unknown]
  - Fatigue [Recovered/Resolved]
  - Swelling [Unknown]
